FAERS Safety Report 17177825 (Version 1)
Quarter: 2019Q4

REPORT INFORMATION
  Report Type: Spontaneous
  Country: US (occurrence: US)
  Receive Date: 20191219
  Receipt Date: 20191219
  Transmission Date: 20200122
  Serious: Yes (Other)
  Sender: FDA-Public Use
  Company Number: US-AMGEN INC.-USASP2019210007

PATIENT
  Sex: Female

DRUGS (1)
  1. AIMOVIG [Suspect]
     Active Substance: ERENUMAB-AOOE
     Indication: EXPOSURE DURING PREGNANCY
     Dosage: UNK
     Route: 050

REACTIONS (3)
  - Anembryonic gestation [Recovered/Resolved]
  - Abortion spontaneous [Recovered/Resolved]
  - Paternal exposure during pregnancy [Recovered/Resolved]
